FAERS Safety Report 4381989-6 (Version None)
Quarter: 2004Q2

REPORT INFORMATION
  Report Type: 
  Country: None (occurrence: None)
  Receive Date: 20040615
  Receipt Date: 20040602
  Transmission Date: 20050107
  Serious: Yes (Other)
  Sender: FDA-Public Use
  Company Number: TUK2004A00064

PATIENT
  Age: 49 Year
  Sex: Male

DRUGS (5)
  1. ACTOS [Suspect]
     Indication: DIABETES MELLITUS
     Dosage: ORAL; DAYS
     Route: 048
     Dates: start: 20031010
  2. METFORMIN HCL [Concomitant]
  3. ASPIRIN [Concomitant]
  4. LISINOPRIL [Concomitant]
  5. ATORVASTATIN (ATORVASTATIN) [Concomitant]

REACTIONS (3)
  - ARTHRITIS [None]
  - ERYTHEMA [None]
  - OEDEMA PERIPHERAL [None]
